FAERS Safety Report 16994104 (Version 1)
Quarter: 2019Q4

REPORT INFORMATION
  Report Type: Spontaneous
  Country: US (occurrence: US)
  Receive Date: 20190923
  Receipt Date: 20190923
  Transmission Date: 20200122
  Serious: Yes (Hospitalization)
  Sender: FDA-Public Use
  Company Number: None

PATIENT
  Age: 74 Year
  Sex: Female
  Weight: 73.03 kg

DRUGS (1)
  1. PREDNISONE. [Suspect]
     Active Substance: PREDNISONE
     Indication: ASTHMA
     Route: 048
     Dates: start: 20190421, end: 20190421

REACTIONS (5)
  - Dysphonia [None]
  - Throat tightness [None]
  - Chest discomfort [None]
  - Dyspnoea [None]
  - Anaphylactic reaction [None]

NARRATIVE: CASE EVENT DATE: 20190422
